FAERS Safety Report 7003414-9 (Version None)
Quarter: 2010Q3

REPORT INFORMATION
  Report Type: 
  Country: None (occurrence: None)
  Receive Date: 20100920
  Receipt Date: 20100715
  Transmission Date: 20110219
  Serious: No
  Sender: FDA-Public Use
  Company Number: US-PFIZER INC-2010089401

PATIENT
  Sex: Female
  Weight: 68.027 kg

DRUGS (11)
  1. CHANTIX [Suspect]
     Indication: SMOKING CESSATION THERAPY
     Dosage: 0.5 MG, 1X/DAY
     Route: 048
     Dates: start: 20100702
  2. CHANTIX [Suspect]
     Dosage: 1 MG, 2X/DAY
     Route: 048
     Dates: start: 20100702
  3. PROMETHAZINE HYDROCHLORIDE [Suspect]
     Indication: NAUSEA
     Dosage: 25 MG, UNK
     Dates: start: 20100701
  4. AMITIZA [Suspect]
     Indication: CONSTIPATION
     Dosage: UNK
     Dates: end: 20100701
  5. CLARITIN [Suspect]
     Indication: HYPERSENSITIVITY
     Dosage: UNK
     Dates: end: 20100701
  6. LEVOTHYROXINE [Concomitant]
     Indication: THYROID DISORDER
     Dosage: 2.5 MG, UNK
     Route: 048
  7. MONTELUKAST [Concomitant]
     Indication: HYPERSENSITIVITY
     Dosage: UNK
  8. CLONAZEPAM [Concomitant]
     Indication: ANXIETY
     Dosage: 0.5 MG, DAILY
  9. PROTONIX [Concomitant]
     Indication: GASTROOESOPHAGEAL REFLUX DISEASE
     Dosage: 40 MG, AS NEEDED
     Route: 048
  10. CRESTOR [Concomitant]
     Indication: BLOOD CHOLESTEROL
     Dosage: 10 MG, UNK
     Route: 048
  11. LAMOTRIGINE [Concomitant]
     Indication: BIPOLAR DISORDER
     Dosage: 350 MG, UNK
     Route: 048

REACTIONS (5)
  - DECREASED APPETITE [None]
  - DRUG INEFFECTIVE [None]
  - NAUSEA [None]
  - SOMNOLENCE [None]
  - VOMITING [None]
